FAERS Safety Report 24020547 (Version 1)
Quarter: 2024Q2

REPORT INFORMATION
  Report Type: Spontaneous
  Country: FR (occurrence: FR)
  Receive Date: 20240627
  Receipt Date: 20240627
  Transmission Date: 20240716
  Serious: Yes (Hospitalization)
  Sender: FDA-Public Use
  Company Number: None

PATIENT
  Age: 21 Year
  Sex: Female
  Weight: 52 kg

DRUGS (3)
  1. IBUPROFEN [Suspect]
     Active Substance: IBUPROFEN
     Indication: Headache
     Dosage: IBUPROFENE
     Route: 048
     Dates: start: 20231224, end: 20231224
  2. IBUPROFEN [Suspect]
     Active Substance: IBUPROFEN
     Indication: Headache
     Dosage: IBUPROFENE
     Route: 048
     Dates: start: 20240121, end: 20240121
  3. IBUPROFEN [Suspect]
     Active Substance: IBUPROFEN
     Indication: Headache
     Dosage: IBUPROFENE
     Route: 048
     Dates: start: 20240114, end: 20240114

REACTIONS (1)
  - Toxic epidermal necrolysis [Recovering/Resolving]

NARRATIVE: CASE EVENT DATE: 20240125
